FAERS Safety Report 5571237-3 (Version None)
Quarter: 2007Q4

REPORT INFORMATION
  Report Type: 
  Country: None (occurrence: None)
  Receive Date: 20071221
  Receipt Date: 20070309
  Transmission Date: 20080405
  Serious: No
  Sender: FDA-Public Use
  Company Number: A0642606A

PATIENT
  Age: 54 Year
  Sex: Female

DRUGS (2)
  1. FLONASE [Suspect]
     Indication: SINUSITIS
     Dosage: 1SPR PER DAY
     Route: 045
  2. THYROID SUPPLEMENT [Concomitant]

REACTIONS (3)
  - AGEUSIA [None]
  - ANOSMIA [None]
  - PAROSMIA [None]
